FAERS Safety Report 7225658-3 (Version None)
Quarter: 2011Q1

REPORT INFORMATION
  Report Type: 
  Country: None (occurrence: None)
  Receive Date: 20110113
  Receipt Date: 20101203
  Transmission Date: 20110831
  Serious: No
  Sender: FDA-Public Use
  Company Number: US-NOVEN-10US001418

PATIENT
  Sex: Female

DRUGS (2)
  1. UNKNOWN [Concomitant]
  2. FENTANYL-100 [Suspect]
     Indication: PAIN
     Dosage: 75 UG/HR Q3DAYS
     Route: 062

REACTIONS (2)
  - PRODUCT QUALITY ISSUE [None]
  - DRUG ADMINISTRATION ERROR [None]
